FAERS Safety Report 6713643-7 (Version None)
Quarter: 2010Q2

REPORT INFORMATION
  Report Type: 
  Country: None (occurrence: None)
  Receive Date: 20100506
  Receipt Date: 20100427
  Transmission Date: 20101027
  Serious: Yes (Other)
  Sender: FDA-Public Use
  Company Number: B0649856A

PATIENT
  Age: 26 Year
  Sex: Female
  Weight: 88.9 kg

DRUGS (4)
  1. LAMOTRIGINE [Suspect]
     Route: 048
     Dates: start: 20100401
  2. LAMOTRIGINE [Suspect]
     Route: 048
     Dates: start: 20100413
  3. NYTOL [Concomitant]
     Indication: INSOMNIA
     Route: 048
     Dates: start: 20100101, end: 20100315
  4. KALMS [Concomitant]
     Route: 048
     Dates: start: 20091201, end: 20100315

REACTIONS (2)
  - NECK MASS [None]
  - RASH GENERALISED [None]
